FAERS Safety Report 8802946 (Version 4)
Quarter: 2013Q1

REPORT INFORMATION
  Report Type: Spontaneous
  Country: BR (occurrence: BR)
  Receive Date: 20120924
  Receipt Date: 20130125
  Transmission Date: 20140127
  Serious: Yes (Other)
  Sender: FDA-Public Use
  Company Number: BR-PFIZER INC-2012178801

PATIENT
  Age: 59 Year
  Sex: Female
  Weight: 47 kg

DRUGS (21)
  1. ENBREL [Suspect]
     Indication: RHEUMATOID ARTHRITIS
     Dosage: 50 MG, ONCE WEEKLY
     Route: 058
     Dates: start: 201207, end: 201209
  2. METHOTREXATE [Suspect]
     Dosage: 2.5 MG, 8 TABLETS ONCE WEEKLY
     Dates: start: 1992
  3. CORTISONE [Suspect]
     Dosage: UNK
     Dates: start: 1992
  4. ALENDRONATE SODIUM [Concomitant]
     Indication: OSTEOPOROSIS
     Dosage: 70 MG, ONCE WEEKLY
  5. SIMVASTATIN [Concomitant]
     Indication: BLOOD CHOLESTEROL ABNORMAL
     Dosage: 20 MG, 1X/DAY AT NIGHT
  6. MACRODANTINA [Concomitant]
     Indication: URINARY TRACT INFECTION
     Dosage: 100 MG, 1X/DAY
  7. URO-VAXOM [Concomitant]
     Indication: URINARY TRACT INFECTION
     Dosage: 100 MG, 1X/DAY
  8. FOLIC ACID [Concomitant]
     Dosage: 2 TABLETS (5MG EACH)  WEEKLY
     Route: 048
  9. REDOXON [Concomitant]
     Dosage: UNK, 1X/DAY
  10. OSSOTRAT [Concomitant]
     Dosage: 600 MG, 1X/DAY
  11. ALPRAZOLAM [Concomitant]
     Indication: ANTIDEPRESSANT THERAPY
     Dosage: 2 MG, 3X/DAY
     Route: 048
  12. LACRIMA PLUS [Concomitant]
  13. PREMARIN [Concomitant]
     Dosage: UNK, 2X/WEEK
  14. IMIPRAMINE [Concomitant]
     Dosage: 25 MG, UNK
  15. ALOIN [Concomitant]
     Dosage: 20 MG, UNK
  16. NORTRIPTYLINE [Concomitant]
     Dosage: 25 MG, 1X/DAY
  17. FUCUS [Concomitant]
     Dosage: 100 MG, 1X/DAY
  18. SENE [Concomitant]
     Dosage: 100 MG, 1X/DAY AT NIGHT
  19. METICORTEN [Concomitant]
     Dosage: UNK
  20. OMEPRAZOL [Concomitant]
     Dosage: 20 MG, 1X/DAY
     Route: 048
  21. BENZALKONIUM CHLORIDE/METRONIDAZOLE BENZOATE/NYSTATIN [Concomitant]

REACTIONS (6)
  - Urinary tract infection [Not Recovered/Not Resolved]
  - Headache [Not Recovered/Not Resolved]
  - Back pain [Unknown]
  - Tremor [Not Recovered/Not Resolved]
  - Limb discomfort [Not Recovered/Not Resolved]
  - Oral discomfort [Not Recovered/Not Resolved]
